FAERS Safety Report 23590286 (Version 1)
Quarter: 2024Q1

REPORT INFORMATION
  Report Type: Other
  Country: IT (occurrence: None)
  Receive Date: 20240304
  Receipt Date: 20240304
  Transmission Date: 20240409
  Serious: Yes (Death)
  Sender: FDA-Public Use
  Company Number: IT-ROCHE-3518374

PATIENT
  Age: 60 Year
  Sex: Female
  Weight: 65 kg

DRUGS (5)
  1. TAXOL [Suspect]
     Active Substance: PACLITAXEL
     Indication: HER2 positive breast cancer
     Dosage: WEEKLY
     Route: 042
     Dates: start: 20180726, end: 20181105
  2. PERJETA [Suspect]
     Active Substance: PERTUZUMAB
     Indication: HER2 positive breast cancer
     Dosage: Q3W - EVERY 3 WEEKS
     Route: 042
     Dates: start: 20180817, end: 20181019
  3. HERCEPTIN [Suspect]
     Active Substance: TRASTUZUMAB
     Indication: HER2 positive breast cancer
     Dosage: Q3W - EVERY 3 WEEKS
     Route: 041
     Dates: start: 20180817, end: 20181019
  4. PREDNISONE [Concomitant]
     Active Substance: PREDNISONE
     Dosage: ONGOING = CHECKED
     Dates: start: 20181105
  5. PIPERACILLIN [Concomitant]
     Active Substance: PIPERACILLIN
     Indication: Acute interstitial pneumonitis
     Dosage: ONGOING = NOT CHECKED
     Dates: start: 20181115, end: 20181215

REACTIONS (1)
  - Death [Fatal]

NARRATIVE: CASE EVENT DATE: 20181230
